FAERS Safety Report 17134044 (Version 1)
Quarter: 2019Q4

REPORT INFORMATION
  Report Type: Spontaneous
  Country: FR (occurrence: FR)
  Receive Date: 20191210
  Receipt Date: 20191210
  Transmission Date: 20200122
  Serious: Yes (Life-Threatening, Hospitalization)
  Sender: FDA-Public Use
  Company Number: FR-TEVA-2019-FR-1148219

PATIENT
  Age: 45 Year
  Sex: Male
  Weight: 55 kg

DRUGS (8)
  1. TIORFAN 100 MG, GELULE [Concomitant]
     Active Substance: RACECADOTRIL
     Route: 048
  2. ACIDE FOLINIQUE [Concomitant]
     Active Substance: LEUCOVORIN
     Route: 042
  3. FLUOROURACILE [Concomitant]
     Active Substance: FLUOROURACIL
     Route: 042
  4. AERIUS (DESLORATADINE) [Concomitant]
     Active Substance: DESLORATADINE
     Route: 048
  5. ONDANSETRON [Concomitant]
     Active Substance: ONDANSETRON
     Route: 048
  6. OXALIPLATIN INJECTION 50MG/10 ML+100MG/20ML [Suspect]
     Active Substance: OXALIPLATIN
     Indication: COLON CANCER
     Dosage: 130 MG PER 2 WEEKS
     Route: 042
     Dates: start: 20190626, end: 20190626
  7. EMEND [Concomitant]
     Active Substance: APREPITANT
     Route: 048
  8. PREDNISOLONE. [Concomitant]
     Active Substance: PREDNISOLONE
     Route: 048

REACTIONS (1)
  - Anaphylactic shock [Recovered/Resolved]

NARRATIVE: CASE EVENT DATE: 20191010
